FAERS Safety Report 4816181-1 (Version None)
Quarter: 2005Q4

REPORT INFORMATION
  Report Type: 
  Country: None (occurrence: None)
  Receive Date: 20051025
  Receipt Date: 20051012
  Transmission Date: 20060501
  Serious: Yes (Life-Threatening, Hospitalization)
  Sender: FDA-Public Use
  Company Number: 200509525

PATIENT
  Sex: Female

DRUGS (3)
  1. HAEMATE P (FACTOR VIII (ANTIHAEMOPHILIC FACTOR)) (ZLB BEHRING) [Suspect]
     Indication: POST PROCEDURAL HAEMORRHAGE
  2. HAEMATE P (FACTOR VIII (ANTIHAEMOPHILIC FACTOR)) (ZLB BEHRING) [Suspect]
     Indication: PROPHYLAXIS
  3. HAEMATE P (FACTOR VIII (ANTIHAEMOPHILIC FACTOR)) (ZLB BEHRING) [Suspect]
     Indication: VON WILLEBRAND'S DISEASE

REACTIONS (3)
  - PLATELET AGGREGATION ABNORMAL [None]
  - POST PROCEDURAL HAEMORRHAGE [None]
  - THROMBOCYTOPENIA [None]
